FAERS Safety Report 13701565 (Version 3)
Quarter: 2017Q3

REPORT INFORMATION
  Report Type: Spontaneous
  Country: US (occurrence: US)
  Receive Date: 20170629
  Receipt Date: 20170828
  Transmission Date: 20171127
  Serious: No
  Sender: FDA-Public Use
  Company Number: US-PFIZER INC-2017277498

PATIENT
  Age: 67 Year
  Sex: Female
  Weight: 63 kg

DRUGS (3)
  1. ESTRING [Suspect]
     Active Substance: ESTRADIOL
     Dosage: UNK
     Dates: start: 20170620
  2. ESTRING [Suspect]
     Active Substance: ESTRADIOL
     Indication: ATROPHIC VULVOVAGINITIS
     Dosage: UNK
     Dates: start: 2015
  3. ESTRING [Suspect]
     Active Substance: ESTRADIOL
     Dosage: 7.5 UG, UNK

REACTIONS (6)
  - Drug intolerance [Unknown]
  - Abdominal distension [Recovered/Resolved]
  - Neuralgia [Unknown]
  - Vulvovaginal swelling [Recovered/Resolved]
  - Vaginal oedema [Unknown]
  - Vulvovaginal pruritus [Recovered/Resolved]

NARRATIVE: CASE EVENT DATE: 201706
